FAERS Safety Report 15018699 (Version 4)
Quarter: 2019Q2

REPORT INFORMATION
  Report Type: Spontaneous
  Country: FR (occurrence: FR)
  Receive Date: 20180616
  Receipt Date: 20190402
  Transmission Date: 20190711
  Serious: Yes (Other)
  Sender: FDA-Public Use
  Company Number: FR-AUROBINDO-AUR-APL-2018-030873

PATIENT
  Age: 69 Year
  Sex: Male

DRUGS (2)
  1. ALFUZOSIN [Interacting]
     Active Substance: ALFUZOSIN
     Indication: URINARY TRACT DISORDER
     Dosage: UNK
     Route: 065
  2. VORICONAZOLE. [Suspect]
     Active Substance: VORICONAZOLE
     Indication: BRONCHOPULMONARY ASPERGILLOSIS
     Dosage: UNK
     Route: 065

REACTIONS (3)
  - Blood pressure decreased [Unknown]
  - Off label use [Unknown]
  - Drug interaction [Unknown]
